FAERS Safety Report 8107713-9 (Version None)
Quarter: 2012Q1

REPORT INFORMATION
  Report Type: 
  Country: None (occurrence: None)
  Receive Date: 20120202
  Receipt Date: 20120130
  Transmission Date: 20120608
  Serious: No
  Sender: FDA-Public Use
  Company Number: US-JNJFOC-20120113589

PATIENT
  Sex: Male
  Weight: 63.5 kg

DRUGS (2)
  1. INVEGA [Suspect]
     Indication: ASPERGER'S DISORDER
     Route: 048
     Dates: start: 20100101
  2. INVEGA [Suspect]
     Indication: AUTISM
     Route: 048
     Dates: start: 20100101

REACTIONS (1)
  - URTICARIA [None]
